FAERS Safety Report 15800881 (Version 1)
Quarter: 2019Q1

REPORT INFORMATION
  Report Type: Spontaneous
  Country: CA (occurrence: CA)
  Receive Date: 20190109
  Receipt Date: 20190109
  Transmission Date: 20190417
  Serious: Yes (Hospitalization, Other)
  Sender: FDA-Public Use
  Company Number: CA-PFIZER INC-2019005952

PATIENT
  Age: 56 Year
  Sex: Female

DRUGS (2)
  1. FASTURTEC [Interacting]
     Active Substance: RASBURICASE
     Indication: TUMOUR LYSIS SYNDROME
     Dosage: 3.0 MG, SINGLE (ONCE)
     Route: 042
  2. LIDOCAINE HCL [Suspect]
     Active Substance: LIDOCAINE HYDROCHLORIDE
     Dosage: UNK, SINGLE (ONCE)

REACTIONS (3)
  - Oxygen saturation decreased [Recovered/Resolved]
  - Methaemoglobinaemia [Recovered/Resolved]
  - Drug interaction [Recovered/Resolved]
